FAERS Safety Report 24024220 (Version 2)
Quarter: 2024Q3

REPORT INFORMATION
  Report Type: Report from Study
  Country: DK (occurrence: DK)
  Receive Date: 20240627
  Receipt Date: 20240710
  Transmission Date: 20241016
  Serious: No
  Sender: ROCHE
  Company Number: DK-ROCHE-3472581

PATIENT
  Age: 50 Year
  Sex: Male

DRUGS (3)
  1. ALECENSA [Suspect]
     Active Substance: ALECTINIB HYDROCHLORIDE
     Indication: Non-small cell lung cancer
     Route: 048
     Dates: start: 20171019, end: 20231213
  2. PREDNISOLONE [Concomitant]
     Active Substance: PREDNISOLONE
  3. LORLATINIB [Concomitant]
     Active Substance: LORLATINIB

REACTIONS (2)
  - Cognitive disorder [Not Recovered/Not Resolved]
  - Disease progression [Unknown]

NARRATIVE: CASE EVENT DATE: 20231122
